FAERS Safety Report 7554843-6 (Version None)
Quarter: 2011Q2

REPORT INFORMATION
  Report Type: 
  Country: None (occurrence: None)
  Receive Date: 20110617
  Receipt Date: 20110610
  Transmission Date: 20111010
  Serious: Yes (Disabling, Other)
  Sender: FDA-Public Use
  Company Number: US-MERCK-1106USA01607

PATIENT
  Age: 6 Year
  Sex: Male

DRUGS (10)
  1. SINGULAIR [Suspect]
     Route: 048
     Dates: start: 20110101, end: 20110101
  2. SINGULAIR [Suspect]
     Route: 048
     Dates: start: 20110101
  3. SINGULAIR [Suspect]
     Indication: UTERINE INFLAMMATION
     Route: 048
     Dates: start: 20110101, end: 20110101
  4. ACCOLATE [Concomitant]
     Route: 065
  5. SINGULAIR [Suspect]
     Route: 048
     Dates: start: 20110101, end: 20110101
  6. SINGULAIR [Suspect]
     Route: 048
     Dates: start: 20110101
  7. ZYRTEC [Concomitant]
     Route: 065
  8. FLOVENT [Concomitant]
     Route: 065
  9. DEXILANT [Concomitant]
     Route: 065
  10. SINGULAIR [Suspect]
     Indication: HYPERSENSITIVITY
     Route: 048
     Dates: start: 20110101, end: 20110101

REACTIONS (3)
  - HALLUCINATION [None]
  - FEAR [None]
  - SLEEP TERROR [None]
